FAERS Safety Report 12168970 (Version 2)
Quarter: 2016Q1

REPORT INFORMATION
  Report Type: Spontaneous
  Country: FR (occurrence: FR)
  Receive Date: 20160310
  Receipt Date: 20160314
  Transmission Date: 20160526
  Serious: Yes (Death)
  Sender: FDA-Public Use
  Company Number: FR-FRESENIUS KABI-FK201601225

PATIENT

DRUGS (6)
  1. FLUOROURACIL (MANUFACTURER UNKNOWN) [Suspect]
     Active Substance: FLUOROURACIL
     Indication: OESOPHAGEAL CARCINOMA
     Route: 065
  2. CETUXIMAB [Suspect]
     Active Substance: CETUXIMAB
  3. FLUOROURACIL (MANUFACTURER UNKNOWN) [Suspect]
     Active Substance: FLUOROURACIL
     Route: 065
  4. OXALIPLATIN (MANUFACTURER UNKNOWN) [Suspect]
     Active Substance: OXALIPLATIN
     Indication: OESOPHAGEAL CARCINOMA
     Route: 065
  5. LEUCOVORIN CALCIUM (MANUFACTURER UNKNOWN) [Suspect]
     Active Substance: LEUCOVORIN CALCIUM
     Indication: OESOPHAGEAL CARCINOMA
     Route: 065
  6. CETUXIMAB [Suspect]
     Active Substance: CETUXIMAB
     Indication: OESOPHAGEAL CARCINOMA

REACTIONS (2)
  - Gastrointestinal haemorrhage [Fatal]
  - Oesophagitis [Fatal]
